FAERS Safety Report 25595226 (Version 1)
Quarter: 2025Q3

REPORT INFORMATION
  Report Type: Report from Study
  Country: US (occurrence: US)
  Receive Date: 20250723
  Receipt Date: 20250723
  Transmission Date: 20251020
  Serious: Yes (Other)
  Sender: ALEXION PHARMACEUTICALS
  Company Number: US-AstraZeneca-CH-00888240A

PATIENT
  Age: 61 Year
  Sex: Female
  Weight: 50.794 kg

DRUGS (2)
  1. BENRALIZUMAB [Suspect]
     Active Substance: BENRALIZUMAB
     Indication: Asthma
     Dosage: 30 MILLIGRAM, Q8W
     Dates: start: 202312, end: 202505
  2. BENRALIZUMAB [Suspect]
     Active Substance: BENRALIZUMAB

REACTIONS (4)
  - Bronchopulmonary aspergillosis [Unknown]
  - Infection [Not Recovered/Not Resolved]
  - Pulmonary mass [Unknown]
  - Laryngitis [Unknown]

NARRATIVE: CASE EVENT DATE: 20240301
